FAERS Safety Report 9547013 (Version 1)
Quarter: 2013Q2

REPORT INFORMATION
  Report Type: Spontaneous
  Country: US (occurrence: None)
  Receive Date: 20130524
  Receipt Date: 20130524
  Transmission Date: 20140414
  Serious: No
  Sender: FDA-Public Use
  Company Number: PHEH2012US024525

PATIENT
  Age: 45 Year
  Sex: Female

DRUGS (5)
  1. GILENYA (FINGOLIMOD) CAPSULE, 0.5MG [Suspect]
     Indication: MULTIPLE SCLEROSIS
     Route: 048
     Dates: start: 20121211
  2. CLONAZEPAM (CLONAZEPAM) (CLONAZEPAM) [Concomitant]
  3. GABAPENTIN (GABAPENTIN) [Concomitant]
  4. CTALOPRAM (CITALOPRAM) [Concomitant]
  5. VICODIN (HYDROCODONE BITARTRATE, PARACETAMOL) [Concomitant]

REACTIONS (3)
  - Abdominal pain upper [None]
  - Pain [None]
  - Headache [None]
